FAERS Safety Report 6631099-X (Version None)
Quarter: 2010Q1

REPORT INFORMATION
  Report Type: 
  Country: None (occurrence: None)
  Receive Date: 20100309
  Receipt Date: 20100320
  Transmission Date: 20100710
  Serious: Yes (Death, Life-Threatening)
  Sender: FDA-Public Use
  Company Number: 2010EN000078

PATIENT
  Age: 12 Year
  Sex: Female
  Weight: 65 kg

DRUGS (1)
  1. ONCASPAR [Suspect]
     Indication: B PRECURSOR TYPE ACUTE LEUKAEMIA
     Dosage: 4250 IU;X1;IV
     Route: 042
     Dates: start: 20100127, end: 20100127

REACTIONS (9)
  - BLOOD LACTIC ACID INCREASED [None]
  - CEREBRAL INFARCTION [None]
  - CEREBROVASCULAR ACCIDENT [None]
  - COAGULOPATHY [None]
  - GENERAL PHYSICAL HEALTH DETERIORATION [None]
  - HYPERTENSION [None]
  - INTRACRANIAL VENOUS SINUS THROMBOSIS [None]
  - LEUKAEMIC INFILTRATION [None]
  - PYREXIA [None]
